FAERS Safety Report 21335907 (Version 1)
Quarter: 2022Q3

REPORT INFORMATION
  Report Type: Spontaneous
  Country: IT (occurrence: IT)
  Receive Date: 20220915
  Receipt Date: 20220915
  Transmission Date: 20221026
  Serious: Yes (Other)
  Sender: FDA-Public Use
  Company Number: IT-AUROBINDO-AUR-APL-2022-036416

PATIENT
  Age: 35 Year
  Sex: Female

DRUGS (7)
  1. CEFIXIME [Suspect]
     Active Substance: CEFIXIME
     Indication: Antibiotic therapy
     Dosage: UNK
     Route: 065
  2. CHLORHEXIDINE [Concomitant]
     Active Substance: CHLORHEXIDINE
     Indication: Bacterial infection
     Dosage: UNK
     Route: 048
  3. ARTICAINE HYDROCHLORIDE\EPINEPHRINE BITARTRATE [Concomitant]
     Active Substance: ARTICAINE HYDROCHLORIDE\EPINEPHRINE BITARTRATE
     Indication: Induction of anaesthesia
     Dosage: UNK
     Route: 065
  4. IBUPROFEN [Concomitant]
     Active Substance: IBUPROFEN
     Indication: Analgesic therapy
     Dosage: UNK
     Route: 065
  5. SALINE [Concomitant]
     Active Substance: SODIUM CHLORIDE
     Indication: Irrigation therapy
     Dosage: UNK
     Route: 065
  6. HYDROGEN PEROXIDE [Concomitant]
     Active Substance: HYDROGEN PEROXIDE
     Indication: Irrigation therapy
     Dosage: UNK
     Route: 065
  7. AZITHROMYCIN [Concomitant]
     Active Substance: AZITHROMYCIN
     Indication: Product used for unknown indication
     Dosage: UNK
     Route: 065

REACTIONS (3)
  - Alveolar osteitis [Unknown]
  - Staphylococcal infection [Unknown]
  - Intentional product misuse [Unknown]
